FAERS Safety Report 5527462-0 (Version None)
Quarter: 2007Q4

REPORT INFORMATION
  Report Type: 
  Country: None (occurrence: None)
  Receive Date: 20071128
  Receipt Date: 20071122
  Transmission Date: 20080405
  Serious: Yes (Death)
  Sender: FDA-Public Use
  Company Number: FR-RB-008623-07

PATIENT
  Age: 21 Year
  Sex: Male

DRUGS (2)
  1. SUBUTEX [Suspect]
     Indication: DRUG WITHDRAWAL MAINTENANCE THERAPY
     Route: 048
     Dates: start: 20071011
  2. SUBUTEX [Suspect]
     Route: 060
     Dates: start: 20070619

REACTIONS (1)
  - RUPTURED CEREBRAL ANEURYSM [None]
